FAERS Safety Report 7666382 (Version 2)
Quarter: 2014Q4

REPORT INFORMATION
  Report Type: Spontaneous
  Country: JP (occurrence: JP)
  Receive Date: 20101112
  Receipt Date: 20141006
  Transmission Date: 20150529
  Serious: Yes (Other)
  Sender: FDA-Public Use
  Company Number: JP-PFIZER INC-2010142964

PATIENT
  Age: 70 Year
  Sex: Male

DRUGS (7)
  1. LYRICA [Suspect]
     Active Substance: PREGABALIN
     Dosage: 200 MG DAILY
     Route: 048
  2. METHYCOBAL [Concomitant]
     Active Substance: METHYLCOBALAMIN
     Dosage: UNK
  3. GOSHAJINKIGAN [Concomitant]
     Active Substance: HERBALS
     Dosage: UNK
  4. MAGNESIUM [Concomitant]
     Active Substance: MAGNESIUM
     Dosage: UNK
  5. MUCOSTA [Concomitant]
     Active Substance: REBAMIPIDE
     Dosage: UNK
  6. LYRICA [Suspect]
     Active Substance: PREGABALIN
     Indication: POST HERPETIC NEURALGIA
     Dosage: 100 MG, DAILY
     Route: 048
     Dates: start: 20100823
  7. HYPEN [Concomitant]
     Active Substance: ETODOLAC
     Dosage: UNK

REACTIONS (3)
  - Coordination abnormal [Unknown]
  - Dysgraphia [Unknown]
  - Dysarthria [Unknown]

NARRATIVE: CASE EVENT DATE: 201010
